FAERS Safety Report 24278731 (Version 2)
Quarter: 2024Q3

REPORT INFORMATION
  Report Type: Report from Study
  Country: EG (occurrence: EG)
  Receive Date: 20240903
  Receipt Date: 20240912
  Transmission Date: 20241017
  Serious: Yes (Other)
  Sender: BOEHRINGER INGELHEIM
  Company Number: EG-BoehringerIngelheim-2024-BI-048954

PATIENT
  Age: 53 Year
  Sex: Male
  Weight: 99 kg

DRUGS (9)
  1. OFEV [Suspect]
     Active Substance: NINTEDANIB
     Indication: Pulmonary fibrosis
     Route: 048
     Dates: start: 2022
  2. proclan 7.5 mg [Concomitant]
     Indication: Cardiac disorder
     Route: 048
     Dates: start: 2022
  3. solubred [Concomitant]
     Indication: Pulmonary fibrosis
     Dosage: DIFFRENT DOSES UNDER HC DECSION
     Route: 048
     Dates: start: 202203
  4. Rotacystien sachets [Concomitant]
     Indication: Productive cough
     Route: 048
     Dates: start: 2022
  5. ASPIRIN [Concomitant]
     Active Substance: ASPIRIN
     Indication: Thrombosis prophylaxis
     Route: 048
     Dates: start: 2022
  6. VALSARTAN [Concomitant]
     Active Substance: VALSARTAN
     Indication: Hypertension
     Route: 048
     Dates: start: 2023
  7. Insuline (novorapid) [Concomitant]
     Indication: Diabetes mellitus
     Dosage: 25CM THREE TIMES,
     Route: 058
     Dates: start: 2004
  8. LANTUS [Concomitant]
     Active Substance: INSULIN GLARGINE
     Indication: Diabetes mellitus
     Dosage: WITH MEALS
     Dates: start: 2004
  9. GLUCOPHAGE [Concomitant]
     Active Substance: METFORMIN HYDROCHLORIDE
     Indication: Diabetes mellitus
     Dates: start: 2004

REACTIONS (2)
  - Oedema peripheral [Recovered/Resolved]
  - Hypertension [Recovering/Resolving]

NARRATIVE: CASE EVENT DATE: 20230101
